FAERS Safety Report 6394417-6 (Version None)
Quarter: 2009Q4

REPORT INFORMATION
  Report Type: 
  Country: None (occurrence: None)
  Receive Date: 20091006
  Receipt Date: 20090916
  Transmission Date: 20100525
  Serious: Yes (Hospitalization)
  Sender: FDA-Public Use
  Company Number: 87672

PATIENT
  Age: 50 Year
  Sex: Male
  Weight: 126 kg

DRUGS (2)
  1. ETOPOSIDE [Suspect]
     Indication: LEUKAEMIA
     Dosage: CONTINOUS INFUSION FOR 4 DAYS
     Dates: start: 20090831, end: 20090901
  2. ETOPOSIDE [Suspect]
     Indication: NEOPLASM MALIGNANT
     Dosage: CONTINOUS INFUSION FOR 4 DAYS
     Dates: start: 20090831, end: 20090901

REACTIONS (2)
  - PRODUCT DEPOSIT [None]
  - PRODUCT QUALITY ISSUE [None]
